FAERS Safety Report 22277899 (Version 1)
Quarter: 2023Q2

REPORT INFORMATION
  Report Type: Spontaneous
  Country: GB (occurrence: GB)
  Receive Date: 20230503
  Receipt Date: 20230503
  Transmission Date: 20230721
  Serious: Yes (Other)
  Sender: FDA-Public Use
  Company Number: None

PATIENT
  Age: 79 Year
  Sex: Female
  Weight: 112 kg

DRUGS (13)
  1. CLARITHROMYCIN [Suspect]
     Active Substance: CLARITHROMYCIN
     Indication: Product used for unknown indication
     Dosage: 1 DOSAGE FORM, BID
     Route: 065
     Dates: start: 20230418
  2. AMITRIPTYLINE HYDROCHLORIDE [Concomitant]
     Active Substance: AMITRIPTYLINE HYDROCHLORIDE
     Dosage: 2 DOSAGE FORM, QD (AT NIGHT)
     Route: 065
     Dates: start: 20170109
  3. COCODAMOL [Concomitant]
     Active Substance: ACETAMINOPHEN\CODEINE PHOSPHATE
     Dosage: TAKE ONE OR TWO TABLETS UPTO FOUR TIMES DAILY F
     Route: 065
     Dates: start: 20230210, end: 20230222
  4. FLUTICASONE FUROATE [Concomitant]
     Active Substance: FLUTICASONE FUROATE
     Dosage: 1 DOSAGE FORM, QD
     Route: 065
     Dates: start: 20171010
  5. FUROSEMIDE [Concomitant]
     Active Substance: FUROSEMIDE
     Dosage: 0.5 DOSAGE FORM, QD (EVERY MORNING)
     Route: 065
     Dates: start: 20230210, end: 20230310
  6. GLICLAZIDE [Concomitant]
     Active Substance: GLICLAZIDE
     Dosage: 1 DOSAGE FORM, QD (WITH MAIN MEAL OF THE DAY)
     Route: 065
     Dates: start: 20200615
  7. HYDROCORTISONE [Concomitant]
     Active Substance: HYDROCORTISONE
     Dosage: 1 DOSAGE FORM, BID (APPLY)
     Route: 061
     Dates: start: 20230329, end: 20230405
  8. INDAPAMIDE [Concomitant]
     Active Substance: INDAPAMIDE
     Dosage: 1 DOSAGE FORM, QD (EVERY MORNING)
     Route: 065
     Dates: start: 20220801
  9. LEVOTHYROXINE [Concomitant]
     Active Substance: LEVOTHYROXINE
     Dosage: 1 DOSAGE FORM, QD
     Route: 065
     Dates: start: 20210210
  10. ALBUTEROL [Concomitant]
     Active Substance: ALBUTEROL
     Dosage: 1 -2 PUFFS AS REQUIRED MAX 8 PER DAY
     Route: 065
     Dates: start: 20171010
  11. METFORMIN HYDROCHLORIDE [Concomitant]
     Active Substance: METFORMIN HYDROCHLORIDE
     Dosage: 2 DOSAGE FORM, QD (WITH MAIN MEAL)
     Route: 065
     Dates: start: 20190903
  12. BENZALKONIUM CHLORIDE\DIMETHICONE\HYDROCORTISONE\NYSTATIN [Concomitant]
     Active Substance: BENZALKONIUM CHLORIDE\DIMETHICONE\HYDROCORTISONE\NYSTATIN
     Dosage: 1 DOSAGE FORM, TID (APPLY)
     Route: 061
     Dates: start: 20230418
  13. TRELEGY ELLIPTA [Concomitant]
     Active Substance: FLUTICASONE FUROATE\UMECLIDINIUM BROMIDE\VILANTEROL TRIFENATATE
     Dosage: 1 DOSAGE FORM, QD
     Route: 055
     Dates: start: 20220824

REACTIONS (2)
  - Chest discomfort [Recovered/Resolved]
  - Nausea [Recovered/Resolved]
